FAERS Safety Report 5910709-6 (Version None)
Quarter: 2008Q4

REPORT INFORMATION
  Report Type: 
  Country: None (occurrence: None)
  Receive Date: 20081007
  Receipt Date: 20081001
  Transmission Date: 20090506
  Serious: Yes (Life-Threatening)
  Sender: FDA-Public Use
  Company Number: FR-PURDUE-GBR_2008_0004067

PATIENT
  Age: 20 Year
  Sex: Male

DRUGS (3)
  1. MORPHINE SULFATE [Suspect]
     Indication: DRUG USE FOR UNKNOWN INDICATION
     Dosage: 28 DF, SINGLE
     Route: 048
     Dates: start: 20080411, end: 20080411
  2. LEXOMIL [Suspect]
     Indication: DRUG USE FOR UNKNOWN INDICATION
     Dosage: 16 DF, SINGLE
     Route: 048
     Dates: start: 20080411, end: 20080411
  3. ZYBAN [Suspect]
     Indication: DRUG USE FOR UNKNOWN INDICATION
     Dosage: 20 DF, SINGLE
     Route: 048
     Dates: start: 20080411, end: 20080411

REACTIONS (5)
  - CARDIAC FAILURE [None]
  - CONVULSION [None]
  - HEPATITIS [None]
  - RENAL FAILURE ACUTE [None]
  - RHABDOMYOLYSIS [None]
